FAERS Safety Report 4801697-4 (Version None)
Quarter: 2005Q4

REPORT INFORMATION
  Report Type: 
  Country: None (occurrence: None)
  Receive Date: 20051018
  Receipt Date: 20051005
  Transmission Date: 20060501
  Serious: Yes (Death, Hospitalization)
  Sender: FDA-Public Use
  Company Number: FR-GLAXOSMITHKLINE-B0396436A

PATIENT
  Age: 36 Year
  Sex: Female

DRUGS (5)
  1. COMBIVIR [Suspect]
     Indication: HIV INFECTION
     Route: 048
     Dates: end: 20050825
  2. TELZIR [Suspect]
     Indication: HIV INFECTION
     Route: 048
     Dates: end: 20050825
  3. ZIDOVUDINE [Suspect]
     Indication: ANTIVIRAL PROPHYLAXIS
     Route: 042
     Dates: start: 20050707, end: 20050707
  4. ANTICOAGULANTS (UNSPECIFIED) [Suspect]
     Indication: PHLEBITIS
     Route: 065
     Dates: start: 20050101, end: 20050101
  5. SUSTIVA [Suspect]
     Indication: HIV INFECTION
     Route: 048

REACTIONS (8)
  - CARDIAC ARREST [None]
  - CHEST PAIN [None]
  - DYSPNOEA [None]
  - LOSS OF CONSCIOUSNESS [None]
  - MALAISE [None]
  - NORMAL DELIVERY [None]
  - PHLEBITIS [None]
  - PULMONARY EMBOLISM [None]
